FAERS Safety Report 8268620-4 (Version None)
Quarter: 2012Q1

REPORT INFORMATION
  Report Type: 
  Country: None (occurrence: None)
  Receive Date: 20120327
  Receipt Date: 20091222
  Transmission Date: 20120608
  Serious: Yes (Hospitalization, Other)
  Sender: FDA-Public Use
  Company Number: PHEH2009US13448

PATIENT
  Age: 89 Year
  Sex: Male

DRUGS (5)
  1. GLEEVEC [Suspect]
     Indication: CHRONIC MYELOID LEUKAEMIA
     Dosage: 400 MG, QDAILY, ORAL
     Route: 048
     Dates: start: 20081001, end: 20091001
  2. LOPRESSOR [Concomitant]
  3. ZOFRAN [Concomitant]
  4. SINEMET [Suspect]
  5. ARTANE [Concomitant]

REACTIONS (6)
  - THROMBOCYTOSIS [None]
  - ANAEMIA [None]
  - HAEMOGLOBIN DECREASED [None]
  - HAEMATOCRIT DECREASED [None]
  - WHITE BLOOD CELL COUNT INCREASED [None]
  - FATIGUE [None]
